FAERS Safety Report 8759670 (Version 1)
Quarter: 2012Q4

REPORT INFORMATION
  Report Type: 
  Country: US (occurrence: US)
  Receive Date: 20120830
  Receipt Date: 20120830
  Transmission Date: 20130627
  Serious: Yes (Other)
  Sender: FDA-Public Use
  Company Number: US-ROCHE-761067

PATIENT
  Age: 74 Year
  Sex: Female
  Weight: 70.3 kg

DRUGS (12)
  1. ACTEMRA [Suspect]
     Indication: RHEUMATOID ARTHRITIS
     Dosage: FORM:INFUSION
     Route: 042
  2. PREDNISONE [Concomitant]
     Indication: RHEUMATOID ARTHRITIS
  3. HYDROCHLOROTHIAZIDE [Concomitant]
     Indication: BLOOD PRESSURE
  4. ATENOLOL [Concomitant]
     Indication: BLOOD PRESSURE
  5. PREMARIN [Concomitant]
     Indication: HORMONE REPLACEMENT THERAPY
  6. ZOLOFT [Concomitant]
     Indication: DEPRESSION
  7. NEXIUM [Concomitant]
     Dosage: INDICATION:PPI
  8. DIFLUCAN [Concomitant]
     Indication: CANDIDIASIS
  9. ALPRAZOLAM [Concomitant]
     Indication: SLEEP DISORDER THERAPY
     Dosage: TAKEN AT BEDTIME
  10. LISINOPRIL [Concomitant]
     Indication: BLOOD PRESSURE
  11. ASA [Concomitant]
  12. PRAVASTATIN [Concomitant]
     Indication: BLOOD CHOLESTEROL

REACTIONS (10)
  - Drug ineffective [Not Recovered/Not Resolved]
  - Blood cholesterol increased [Unknown]
  - Neuropathy peripheral [Unknown]
  - Cellulitis [Unknown]
  - Angina pectoris [Unknown]
  - Hepatic enzyme increased [Unknown]
  - Blood cholesterol increased [Unknown]
  - Blood triglycerides increased [Unknown]
  - Low density lipoprotein increased [Unknown]
  - Hypoaesthesia [Unknown]
